FAERS Safety Report 7528986-7 (Version None)
Quarter: 2011Q2

REPORT INFORMATION
  Report Type: 
  Country: None (occurrence: None)
  Receive Date: 20110520
  Receipt Date: 20100618
  Transmission Date: 20111010
  Serious: Yes (Life-Threatening, Hospitalization, Other)
  Sender: FDA-Public Use
  Company Number: 002341

PATIENT
  Sex: Female
  Weight: 70 kg

DRUGS (14)
  1. KEPPRA [Suspect]
     Indication: CONVULSION
     Dosage: (ORAL)
     Route: 048
  2. CIPRO XR [Concomitant]
  3. CYCLOPHOSPHAMIDE [Concomitant]
  4. LACOSAMIDE [Suspect]
     Indication: CONVULSION
     Dosage: (200 MG BID INTRAVENOUS (NOT OTHERWISE SPECIFIED)), (200 MG LOADING DOSE INTRAVENOUS BOLUS)
     Route: 040
     Dates: start: 20091001, end: 20091001
  5. LACOSAMIDE [Suspect]
     Indication: CONVULSION
     Dosage: (200 MG BID INTRAVENOUS (NOT OTHERWISE SPECIFIED)), (200 MG LOADING DOSE INTRAVENOUS BOLUS)
     Route: 040
     Dates: start: 20091022, end: 20091023
  6. PROPOFOL [Concomitant]
  7. FOSPHENYTOIN [Concomitant]
  8. KETAMINE HCL [Concomitant]
  9. PHENOBARBITAL TAB [Concomitant]
  10. CELLCEPT [Concomitant]
  11. KEPPRA [Suspect]
     Indication: CONVULSION
     Dosage: (INTRAVENOUS (NOT OTHERWISE SPECIFIED))
     Route: 042
  12. VERSED [Concomitant]
  13. FLAGYL [Concomitant]
  14. VALPROIC ACID [Concomitant]

REACTIONS (6)
  - STATUS EPILEPTICUS [None]
  - ELECTROENCEPHALOGRAM ABNORMAL [None]
  - CLOSTRIDIUM DIFFICILE COLITIS [None]
  - ANGIOEDEMA [None]
  - BLOOD COUNT ABNORMAL [None]
  - PNEUMONIA [None]
